FAERS Safety Report 8586766-8 (Version None)
Quarter: 2012Q3

REPORT INFORMATION
  Report Type: 
  Country: None (occurrence: None)
  Receive Date: 20120810
  Receipt Date: 20120804
  Transmission Date: 20120928
  Serious: Yes (Death, Hospitalization, Other)
  Sender: FDA-Public Use
  Company Number: JP-ELI_LILLY_AND_COMPANY-JP201205004344

PATIENT
  Age: 90 Year
  Sex: Female

DRUGS (1)
  1. FORTEO [Suspect]
     Dosage: UNK
     Route: 058
     Dates: start: 20120501, end: 20120726

REACTIONS (4)
  - COMPRESSION FRACTURE [None]
  - HERPES ZOSTER [None]
  - SEPSIS [None]
  - DYSPNOEA [None]
